FAERS Safety Report 14781487 (Version 2)
Quarter: 2018Q2

REPORT INFORMATION
  Report Type: Spontaneous
  Country: US (occurrence: US)
  Receive Date: 20180419
  Receipt Date: 20180507
  Transmission Date: 20180711
  Serious: Yes (Other)
  Sender: FDA-Public Use
  Company Number: PHEH2018US014792

PATIENT
  Age: 66 Year
  Sex: Male

DRUGS (1)
  1. SIMBRINZA [Suspect]
     Active Substance: BRIMONIDINE TARTRATE\BRINZOLAMIDE
     Indication: GLAUCOMA
     Dosage: UNK, TID
     Route: 047
     Dates: start: 20180108, end: 20180409

REACTIONS (3)
  - Vision blurred [Unknown]
  - Corneal oedema [Unknown]
  - Keratitis [Recovering/Resolving]

NARRATIVE: CASE EVENT DATE: 20180409
